FAERS Safety Report 24603269 (Version 2)
Quarter: 2024Q4

REPORT INFORMATION
  Report Type: Spontaneous
  Country: CA (occurrence: CA)
  Receive Date: 20241111
  Receipt Date: 20241125
  Transmission Date: 20250115
  Serious: Yes (Death)
  Sender: TEVA
  Company Number: CA-TEVA-VS-3262413

PATIENT
  Sex: Male

DRUGS (1)
  1. METHYLPREDNISOLONE [Suspect]
     Active Substance: METHYLPREDNISOLONE
     Indication: Cryoglobulinaemia
     Dosage: RECEIVED PULSE THERAPY
     Route: 065

REACTIONS (1)
  - Therapy non-responder [Fatal]
